FAERS Safety Report 21457471 (Version 4)
Quarter: 2022Q4

REPORT INFORMATION
  Report Type: Spontaneous
  Country: FI (occurrence: None)
  Receive Date: 20221014
  Receipt Date: 20221118
  Transmission Date: 20230112
  Serious: Yes (Hospitalization, Other)
  Sender: FDA-Public Use
  Company Number: 2022A342311

PATIENT
  Age: 31 Year
  Sex: Male

DRUGS (1)
  1. EVUSHELD [Suspect]
     Active Substance: CILGAVIMAB\TIXAGEVIMAB
     Indication: COVID-19 prophylaxis
     Dosage: 300 MG OF TIXAGEVIMAB + 300 MG OF CILGAVIMAB
     Route: 030
     Dates: start: 20220923

REACTIONS (5)
  - Anaphylactic reaction [Unknown]
  - Malaise [Unknown]
  - Blood pressure increased [Unknown]
  - Rash [Unknown]
  - Urticaria [Unknown]

NARRATIVE: CASE EVENT DATE: 20220924
